FAERS Safety Report 5013198-1 (Version None)
Quarter: 2006Q2

REPORT INFORMATION
  Report Type: 
  Country: None (occurrence: None)
  Receive Date: 20060530
  Receipt Date: 20060317
  Transmission Date: 20061013
  Serious: Yes (Other)
  Sender: FDA-Public Use
  Company Number: US-GLAXOSMITHKLINE-A0598044A

PATIENT
  Age: 68 Year
  Sex: Female
  Weight: 80.9 kg

DRUGS (4)
  1. WELLBUTRIN XL [Suspect]
     Indication: DEPRESSION
     Dosage: 450MG PER DAY
     Route: 048
     Dates: start: 20060101, end: 20060317
  2. ROBAXIN [Concomitant]
  3. NEURONTIN [Concomitant]
  4. PROTONIX [Concomitant]
     Indication: URINARY TRACT INFECTION

REACTIONS (3)
  - DEPRESSION [None]
  - DRUG INEFFECTIVE [None]
  - SUICIDAL IDEATION [None]
